FAERS Safety Report 5276964-3 (Version None)
Quarter: 2007Q1

REPORT INFORMATION
  Report Type: 
  Country: None (occurrence: None)
  Receive Date: 20070327
  Receipt Date: 20070321
  Transmission Date: 20070707
  Serious: Yes (Death, Hospitalization)
  Sender: FDA-Public Use
  Company Number: US-AMGEN-US210908

PATIENT
  Age: 67 Year
  Sex: Male
  Weight: 73.1 kg

DRUGS (12)
  1. VECTIBIX [Suspect]
     Indication: COLORECTAL CANCER
     Route: 042
     Dates: start: 20061108, end: 20070124
  2. ASPIRIN [Concomitant]
     Route: 065
  3. DURAGESIC-100 [Concomitant]
     Route: 065
     Dates: start: 20060105
  4. MS CONTIN [Concomitant]
     Route: 065
     Dates: start: 20070119
  5. MSIR [Concomitant]
     Route: 065
     Dates: start: 20070119
  6. OXYCODONE HCL [Concomitant]
     Route: 065
     Dates: start: 20070202
  7. OXYCODONE HCL [Concomitant]
     Route: 065
     Dates: start: 20070202
  8. PROCRIT [Concomitant]
     Route: 065
     Dates: start: 20070124, end: 20070131
  9. ZOFRAN [Concomitant]
     Route: 065
     Dates: start: 20070110
  10. FERRLECIT [Concomitant]
     Route: 065
     Dates: start: 20070205, end: 20070205
  11. IMODIUM [Concomitant]
     Route: 065
     Dates: start: 20070114
  12. LOMOTIL [Concomitant]
     Route: 065
     Dates: start: 20070117

REACTIONS (9)
  - ABDOMINAL PAIN [None]
  - ABDOMINAL PAIN UPPER [None]
  - DIARRHOEA [None]
  - GASTRITIS [None]
  - HAEMATOCHEZIA [None]
  - MALIGNANT NEOPLASM PROGRESSION [None]
  - MELAENA [None]
  - PAIN [None]
  - STOMACH DISCOMFORT [None]
